FAERS Safety Report 8428902-X (Version None)
Quarter: 2012Q2

REPORT INFORMATION
  Report Type: 
  Country: None (occurrence: None)
  Receive Date: 20120612
  Receipt Date: 20120604
  Transmission Date: 20120825
  Serious: Yes (Death, Other)
  Sender: FDA-Public Use
  Company Number: DE-SANOFI-AVENTIS-2012SA019426

PATIENT
  Age: 74 Year
  Sex: Male
  Weight: 70 kg

DRUGS (5)
  1. BICALUTAMIDE [Concomitant]
     Indication: PROSTATE CANCER
     Route: 065
  2. ONDANSETRON [Concomitant]
     Indication: PREMEDICATION
     Route: 065
     Dates: end: 20120301
  3. JEVTANA KIT [Suspect]
     Indication: PROSTATE CANCER METASTATIC
     Route: 051
  4. ELIGARD [Concomitant]
     Indication: PREMEDICATION
     Route: 065
     Dates: end: 20120101
  5. JEVTANA KIT [Suspect]
     Route: 051
     Dates: start: 20120308, end: 20120308

REACTIONS (3)
  - RENAL FAILURE [None]
  - RESPIRATORY FAILURE [None]
  - FEBRILE NEUTROPENIA [None]
